FAERS Safety Report 19986594 (Version 2)
Quarter: 2021Q4

REPORT INFORMATION
  Report Type: Spontaneous
  Country: RU (occurrence: RU)
  Receive Date: 20211022
  Receipt Date: 20211122
  Transmission Date: 20220303
  Serious: Yes (Other)
  Sender: FDA-Public Use
  Company Number: RU-MERCK HEALTHCARE KGAA-9273079

PATIENT
  Age: 68 Year
  Sex: Male

DRUGS (2)
  1. BAVENCIO [Suspect]
     Active Substance: AVELUMAB
     Indication: Transitional cell carcinoma
     Route: 042
  2. ACETAMINOPHEN [Concomitant]
     Active Substance: ACETAMINOPHEN
     Indication: Premedication

REACTIONS (1)
  - Immune-mediated hepatitis [Unknown]
